FAERS Safety Report 4429422-X (Version None)
Quarter: 2004Q3

REPORT INFORMATION
  Report Type: 
  Country: None (occurrence: None)
  Receive Date: 20040816
  Receipt Date: 20040804
  Transmission Date: 20050211
  Serious: Yes (Hospitalization)
  Sender: FDA-Public Use
  Company Number: 2004053373

PATIENT
  Age: 43 Year
  Sex: Male
  Weight: 62 kg

DRUGS (12)
  1. GEMFIBROZIL [Suspect]
     Indication: HYPERLIPIDAEMIA
     Dosage: 450 MG (450 MG, 1 IN 1 D), ORAL
     Route: 048
  2. RITONAVIR (RITONAVIR) [Suspect]
     Indication: HIV INFECTION
     Dosage: 4 DOSAGE FORMS (1 IN 1D), ORAL
     Route: 048
     Dates: start: 19991115
  3. NEVIRAPINE (NEVIRAPINE) [Suspect]
     Indication: HIV INFECTION
     Dosage: 2 DOSAGE FORMS (1 IN 1 D), ORAL
     Route: 048
     Dates: start: 20020626
  4. ZIDOVUDINE W/LAMIVUDINE (LAMIVUDINE, ZIDOVUDINE) [Suspect]
     Indication: HIV INFECTION
     Dosage: 2 DOSAGE FORMS (1 IN 1 D), ORAL
     Route: 048
     Dates: start: 19970915
  5. PROPRANOLOL [Suspect]
     Indication: HYPERTENSION
     Dosage: 160MG (160 MG, 1 IN 1 D), ORAL
     Route: 048
  6. INDINAVIR SULFATE (INDINAVIR SULFATE) [Suspect]
     Indication: HIV INFECTION
     Dosage: 2 DOSAGE FORMS (1 IN 1 D), ORAL
     Route: 048
     Dates: start: 19991115
  7. ACYCLOVIR [Concomitant]
  8. TERBUTALINE SULFATE [Concomitant]
  9. ACETAMINOPHEN [Concomitant]
  10. BUDESONIDE (BUDESONIDE) [Concomitant]
  11. LOPERAMIDE HYDROCHLORIDE [Concomitant]
  12. ZOPICLONE (ZOPLICONE) [Concomitant]

REACTIONS (1)
  - CORONARY ARTERY DISEASE [None]
